FAERS Safety Report 20623265 (Version 2)
Quarter: 2023Q1

REPORT INFORMATION
  Report Type: Spontaneous
  Country: US (occurrence: US)
  Receive Date: 20220322
  Receipt Date: 20230322
  Transmission Date: 20230418
  Serious: No
  Sender: FDA-Public Use
  Company Number: US-ALLERGAN-2207944US

PATIENT
  Sex: Female

DRUGS (2)
  1. LATISSE [Suspect]
     Active Substance: BIMATOPROST
     Indication: Hair growth abnormal
     Dosage: 2 GTT, QHS
     Dates: start: 202201
  2. LATISSE [Suspect]
     Active Substance: BIMATOPROST
     Indication: Growth of eyelashes
     Dosage: UNK
     Dates: start: 2010, end: 2020

REACTIONS (2)
  - Off label use [Unknown]
  - Therapeutic response decreased [Unknown]
